FAERS Safety Report 7272229-9 (Version None)
Quarter: 2011Q1

REPORT INFORMATION
  Report Type: 
  Country: None (occurrence: None)
  Receive Date: 20110203
  Receipt Date: 20110124
  Transmission Date: 20110831
  Serious: Yes (Hospitalization)
  Sender: FDA-Public Use
  Company Number: PHHY2011BR06054

PATIENT
  Sex: Male

DRUGS (6)
  1. EXELON [Suspect]
     Dosage: 18MG/10CM^2 PER DAY
     Route: 062
     Dates: start: 20101201
  2. MEMANTINE HCL [Concomitant]
     Indication: DEMENTIA
     Dosage: 2 DF, QD
     Route: 048
  3. EXELON [Suspect]
     Indication: DEMENTIA
     Dosage: 9MG/5CM^2 PER DAY
     Route: 062
     Dates: start: 20101101, end: 20101217
  4. LIPITOR [Concomitant]
     Indication: DEMENTIA
     Dosage: 2 DF, QD
     Route: 048
     Dates: start: 20090101
  5. PURAN T4 [Concomitant]
     Indication: DEMENTIA
     Dosage: 1 DF, QD
     Route: 048
     Dates: start: 20090101
  6. ATENOLOL [Concomitant]
     Dosage: 1 DF, QD
     Route: 048
     Dates: start: 19810101

REACTIONS (3)
  - SALIVARY HYPERSECRETION [None]
  - FEMUR FRACTURE [None]
  - FALL [None]
